FAERS Safety Report 7627551-0 (Version None)
Quarter: 2011Q3

REPORT INFORMATION
  Report Type: 
  Country: None (occurrence: None)
  Receive Date: 20110721
  Receipt Date: 20110713
  Transmission Date: 20111222
  Serious: Yes (Other)
  Sender: FDA-Public Use
  Company Number: TW-TYCO HEALTHCARE/MALLINCKRODT-T201101397

PATIENT
  Age: 52 Year
  Sex: Female

DRUGS (3)
  1. SERTRALINE HYDROCHLORIDE [Suspect]
     Dosage: UNK
  2. ESCITALOPRAM [Suspect]
     Dosage: UNK
  3. FLUOXETINE [Suspect]
     Dosage: UNK

REACTIONS (4)
  - MULTIPLE SYSTEM ATROPHY [None]
  - NO THERAPEUTIC RESPONSE [None]
  - EXTRAPYRAMIDAL DISORDER [None]
  - PARKINSONISM [None]
